FAERS Safety Report 9303468 (Version 1)
Quarter: 2013Q2

REPORT INFORMATION
  Report Type: Spontaneous
  Country: US (occurrence: None)
  Receive Date: 20130516
  Receipt Date: 20130516
  Transmission Date: 20140414
  Serious: Yes (Other)
  Sender: FDA-Public Use
  Company Number: FK201301594

PATIENT
  Sex: Male

DRUGS (2)
  1. METHOTREXATE [Suspect]
     Indication: PRODUCT USED FOR UNKNOWN INDICATION
  2. LEUCOVORIN [Suspect]
     Indication: PRODUCT USED FOR UNKNOWN INDICATION

REACTIONS (6)
  - Somnambulism [None]
  - Vomiting [None]
  - Mydriasis [None]
  - Confusional state [None]
  - Hallucination [None]
  - Disturbance in attention [None]
